FAERS Safety Report 5021315-2 (Version None)
Quarter: 2006Q2

REPORT INFORMATION
  Report Type: 
  Country: None (occurrence: None)
  Receive Date: 20060608
  Receipt Date: 20050516
  Transmission Date: 20061013
  Serious: No
  Sender: FDA-Public Use
  Company Number: US-BRISTOL-MYERS SQUIBB COMPANY-12974812

PATIENT
  Sex: Female

DRUGS (2)
  1. SINEMET [Suspect]
     Route: 048
  2. FLEXERIL [Suspect]
     Route: 048

REACTIONS (1)
  - RESTLESSNESS [None]
